FAERS Safety Report 7967585 (Version 5)
Quarter: 2013Q4

REPORT INFORMATION
  Report Type: Spontaneous
  Country: US (occurrence: US)
  Receive Date: 20110531
  Receipt Date: 20131115
  Transmission Date: 20140711
  Serious: Yes (Hospitalization, Other)
  Sender: FDA-Public Use
  Company Number: US-ASTRAZENECA-2011SE30755

PATIENT
  Age: 40 Year
  Sex: Female
  Weight: 117.9 kg

DRUGS (12)
  1. TRAZODONE [Concomitant]
     Indication: BIPOLAR DISORDER
  2. CLONAZEPAM [Concomitant]
     Indication: ANXIETY
  3. RISPERDAL [Concomitant]
  4. SEROQUEL [Suspect]
     Indication: BIPOLAR I DISORDER
     Route: 048
     Dates: start: 1998, end: 2000
  5. SEROQUEL [Suspect]
     Indication: BIPOLAR I DISORDER
     Route: 048
     Dates: start: 2003, end: 2007
  6. SEROQUEL [Suspect]
     Indication: BIPOLAR I DISORDER
     Route: 048
     Dates: start: 2007
  7. NEXIUM [Suspect]
     Indication: BARRETT^S OESOPHAGUS
     Route: 048
     Dates: start: 2009, end: 201310
  8. LAMICTAL [Concomitant]
     Indication: BIPOLAR DISORDER
     Route: 048
     Dates: start: 2003
  9. CYMBALTA [Concomitant]
     Indication: BIPOLAR DISORDER
     Route: 048
  10. CYMBALTA [Concomitant]
     Indication: DEPRESSION
     Route: 048
  11. CYMBALTA [Concomitant]
     Indication: BIPOLAR DISORDER
     Dates: start: 2007
  12. CYMBALTA [Concomitant]
     Indication: DEPRESSION
     Dates: start: 2007

REACTIONS (18)
  - Stab wound [Recovered/Resolved]
  - Fat necrosis [Recovering/Resolving]
  - Upper limb fracture [Unknown]
  - Upper limb fracture [Unknown]
  - Loss of consciousness [Recovered/Resolved]
  - Stress [Unknown]
  - Convulsion [Recovered/Resolved]
  - Grand mal convulsion [Recovered/Resolved]
  - Dyspnoea [Recovered/Resolved]
  - Bipolar disorder [Unknown]
  - Influenza [Unknown]
  - Gastrooesophageal reflux disease [Unknown]
  - Gastric ulcer [Not Recovered/Not Resolved]
  - Malaise [Unknown]
  - Intentional drug misuse [Recovered/Resolved]
  - Off label use [Unknown]
  - Drug dose omission [Unknown]
  - Drug ineffective [Recovered/Resolved]
